FAERS Safety Report 6188161-8 (Version None)
Quarter: 2009Q2

REPORT INFORMATION
  Report Type: 
  Country: None (occurrence: None)
  Receive Date: 20090513
  Receipt Date: 20081110
  Transmission Date: 20091009
  Serious: No
  Sender: FDA-Public Use
  Company Number: A0757311A

PATIENT
  Age: 80 Year
  Sex: Female

DRUGS (2)
  1. DYNACIRC [Suspect]
     Indication: DRUG USE FOR UNKNOWN INDICATION
     Route: 048
  2. CLONIDINE [Suspect]
     Indication: DRUG USE FOR UNKNOWN INDICATION
     Route: 065

REACTIONS (5)
  - BALANCE DISORDER [None]
  - BLOOD PRESSURE INCREASED [None]
  - GINGIVAL BLEEDING [None]
  - HAEMOPTYSIS [None]
  - SENSATION OF HEAVINESS [None]
